FAERS Safety Report 6980372-4 (Version None)
Quarter: 2010Q3

REPORT INFORMATION
  Report Type: 
  Country: None (occurrence: None)
  Receive Date: 20100914
  Receipt Date: 20091026
  Transmission Date: 20110219
  Serious: No
  Sender: FDA-Public Use
  Company Number: US-ABBOTT-09P-163-0605958-00

PATIENT
  Age: 89 Year
  Sex: Female

DRUGS (4)
  1. DEPAKOTE [Suspect]
     Indication: MYOCLONUS
  2. ASPIRIN [Concomitant]
     Indication: PRODUCT USED FOR UNKNOWN INDICATION
     Dates: start: 20090728
  3. ASPIRIN [Concomitant]
     Dates: end: 20090728
  4. OTHER UNKNOWN MEDICATIONS [Concomitant]
     Indication: PRODUCT USED FOR UNKNOWN INDICATION

REACTIONS (5)
  - DRUG INEFFECTIVE [None]
  - DRUG LEVEL DECREASED [None]
  - DRUG LEVEL FLUCTUATING [None]
  - MUSCLE TWITCHING [None]
  - TREMOR [None]
